FAERS Safety Report 6864113-7 (Version None)
Quarter: 2010Q3

REPORT INFORMATION
  Report Type: 
  Country: None (occurrence: None)
  Receive Date: 20100721
  Receipt Date: 20080620
  Transmission Date: 20110219
  Serious: No
  Sender: FDA-Public Use
  Company Number: US-PFIZER INC-2008023121

PATIENT
  Sex: Male
  Weight: 73.6 kg

DRUGS (2)
  1. CHANTIX [Suspect]
     Indication: SMOKING CESSATION THERAPY
     Dates: start: 20080228
  2. VITAMINS [Concomitant]

REACTIONS (14)
  - ABNORMAL DREAMS [None]
  - ASTHENIA [None]
  - EATING DISORDER [None]
  - FATIGUE [None]
  - FEELING ABNORMAL [None]
  - HEADACHE [None]
  - LETHARGY [None]
  - MALAISE [None]
  - MIDDLE INSOMNIA [None]
  - MUSCULOSKELETAL PAIN [None]
  - NECK PAIN [None]
  - PERFORMANCE STATUS DECREASED [None]
  - SLEEP DISORDER [None]
  - SOMNOLENCE [None]
